FAERS Safety Report 4378604-4 (Version None)
Quarter: 2004Q2

REPORT INFORMATION
  Report Type: 
  Country: None (occurrence: None)
  Receive Date: 20040609
  Receipt Date: 20040524
  Transmission Date: 20050107
  Serious: Yes (Other)
  Sender: FDA-Public Use
  Company Number: USA040568341

PATIENT
  Age: 59 Year
  Sex: Male

DRUGS (1)
  1. GEMZAR [Suspect]
     Indication: NON-SMALL CELL LUNG CANCER
     Dosage: 1500 MG
     Dates: start: 20040514

REACTIONS (8)
  - ABDOMINAL PAIN LOWER [None]
  - BLOOD PRESSURE INCREASED [None]
  - BOWEL SOUNDS ABNORMAL [None]
  - COLLAPSE OF LUNG [None]
  - IATROGENIC INJURY [None]
  - PLATELET COUNT DECREASED [None]
  - PLEURAL EFFUSION [None]
  - SPLENIC INJURY [None]
